FAERS Safety Report 7304238-5 (Version None)
Quarter: 2011Q1

REPORT INFORMATION
  Report Type: 
  Country: None (occurrence: None)
  Receive Date: 20110221
  Receipt Date: 20110207
  Transmission Date: 20110831
  Serious: Yes (Hospitalization)
  Sender: FDA-Public Use
  Company Number: US-BAYER-201034725NA

PATIENT
  Sex: Female
  Weight: 101.59 kg

DRUGS (4)
  1. ORTHO TRI-CYCLEN [Concomitant]
     Dosage: UNK
     Dates: start: 20070101
  2. PERCOCET [Concomitant]
  3. LOVENOX [Concomitant]
     Dosage: UNK
     Dates: start: 20081001
  4. YAZ [Suspect]
     Indication: PRODUCT USED FOR UNKNOWN INDICATION
     Route: 048
     Dates: start: 20070101

REACTIONS (6)
  - DEEP VEIN THROMBOSIS [None]
  - PAIN [None]
  - PULMONARY EMBOLISM [None]
  - HEART RATE INCREASED [None]
  - OEDEMA PERIPHERAL [None]
  - VENOUS INSUFFICIENCY [None]
